FAERS Safety Report 8165607-7 (Version None)
Quarter: 2012Q1

REPORT INFORMATION
  Report Type: 
  Country: None (occurrence: None)
  Receive Date: 20120223
  Receipt Date: 20120223
  Transmission Date: 20120608
  Serious: Yes (Other)
  Sender: FDA-Public Use
  Company Number: None

PATIENT
  Age: 42 Year
  Sex: Female
  Weight: 86.1834 kg

DRUGS (4)
  1. METHYLIN [Concomitant]
  2. XANAX [Concomitant]
  3. VALPROIC ACID [Suspect]
     Indication: BIPOLAR I DISORDER
     Dosage: 500MG 3 BID
  4. CYMBALTA [Concomitant]

REACTIONS (2)
  - NAUSEA [None]
  - VOMITING [None]
